FAERS Safety Report 22289128 (Version 1)
Quarter: 2023Q2

REPORT INFORMATION
  Report Type: Spontaneous
  Country: US (occurrence: None)
  Receive Date: 20230504
  Receipt Date: 20230504
  Transmission Date: 20230722
  Serious: Yes (Other)
  Sender: FDA-Public Use
  Company Number: None

PATIENT
  Age: 79 Year
  Sex: Female

DRUGS (8)
  1. NUCALA [Suspect]
     Active Substance: MEPOLIZUMAB
     Indication: Asthma
     Dosage: FREQUENCY : MONTHLY;?
     Route: 058
     Dates: start: 20200821
  2. NUCALA [Suspect]
     Active Substance: MEPOLIZUMAB
     Dosage: OTHER QUANTITY : 1 PEN;?FREQUENCY : MONTHLY;?
     Route: 058
  3. ADVAIR DISKU AER [Concomitant]
  4. ALBUTEROL AER HFA [Concomitant]
  5. FOSAMAX [Concomitant]
     Active Substance: ALENDRONATE SODIUM
  6. MOMETASONE SPR [Concomitant]
  7. OMEPRAZOLE [Concomitant]
  8. TYLENOL [Concomitant]

REACTIONS (3)
  - Quality of life decreased [None]
  - Spinal fracture [None]
  - Back disorder [None]

NARRATIVE: CASE EVENT DATE: 20230201
